FAERS Safety Report 20365910 (Version 1)
Quarter: 2022Q1

REPORT INFORMATION
  Report Type: Spontaneous
  Country: US (occurrence: US)
  Receive Date: 20220123
  Receipt Date: 20220123
  Transmission Date: 20220424
  Serious: No
  Sender: FDA-Public Use
  Company Number: US-BIOGEN-2021BI00981213

PATIENT
  Sex: Female

DRUGS (4)
  1. AMPYRA [Suspect]
     Active Substance: DALFAMPRIDINE
     Indication: Product used for unknown indication
     Dosage: UNK
     Route: 065
  2. TYSABRI [Suspect]
     Active Substance: NATALIZUMAB
     Indication: Multiple sclerosis
     Dosage: UNK
     Route: 065
     Dates: start: 20130822, end: 20150305
  3. TYSABRI [Suspect]
     Active Substance: NATALIZUMAB
     Dosage: UNK
     Route: 065
     Dates: start: 20121120, end: 20130716
  4. TYSABRI [Suspect]
     Active Substance: NATALIZUMAB
     Dosage: UNK
     Route: 065
     Dates: start: 20160118, end: 20170816

REACTIONS (1)
  - Multiple sclerosis [Unknown]
